FAERS Safety Report 5942950-0 (Version None)
Quarter: 2008Q4

REPORT INFORMATION
  Report Type: 
  Country: None (occurrence: None)
  Receive Date: 20081106
  Receipt Date: 20081103
  Transmission Date: 20090506
  Serious: Yes (Death, Hospitalization)
  Sender: FDA-Public Use
  Company Number: US-ASTRAZENECA-2006UW21603

PATIENT
  Age: 32132 Day
  Sex: Male
  Weight: 86.2 kg

DRUGS (3)
  1. SEROQUEL [Suspect]
     Indication: DEMENTIA
     Route: 048
     Dates: start: 20050301, end: 20050501
  2. HALDOL [Concomitant]
     Dates: start: 20050317
  3. EXELON [Concomitant]

REACTIONS (3)
  - DEMENTIA [None]
  - DIABETES MELLITUS [None]
  - LOSS OF CONSCIOUSNESS [None]
